FAERS Safety Report 9512279 (Version 1)
Quarter: 2013Q3

REPORT INFORMATION
  Report Type: Spontaneous
  Country: US (occurrence: US)
  Receive Date: 20130910
  Receipt Date: 20130910
  Transmission Date: 20140515
  Serious: No
  Sender: FDA-Public Use
  Company Number: US-SANOFI-AVENTIS-2013SA081008

PATIENT
  Age: 80 Year
  Sex: Female

DRUGS (1)
  1. AVAPRO [Suspect]
     Indication: HYPERTENSION
     Dosage: TAKEN FROM - 1 YEAR AGO
     Route: 048

REACTIONS (2)
  - Melaena [Not Recovered/Not Resolved]
  - Wrong technique in drug usage process [Unknown]
